FAERS Safety Report 5036379-X (Version None)
Quarter: 2006Q2

REPORT INFORMATION
  Report Type: 
  Country: None (occurrence: None)
  Receive Date: 20060601
  Receipt Date: 20060419
  Transmission Date: 20061013
  Serious: No
  Sender: FDA-Public Use
  Company Number: US200604003235

PATIENT
  Age: 48 Year
  Sex: Male

DRUGS (7)
  1. CYMBALTA [Suspect]
     Indication: DEPRESSION
     Dosage: 20 MG ; 60 MG, DAILY (1/D)
     Dates: start: 20050101
  2. CYMBALTA [Suspect]
     Indication: DEPRESSION
     Dosage: 20 MG ; 60 MG, DAILY (1/D)
     Dates: start: 20050601
  3. EFFEXOR [Concomitant]
  4. BACLOFEN [Concomitant]
  5. PIROXICAM [Concomitant]
  6. TRAMADOL HCL [Concomitant]
  7. NORTRIPTYLINE HCL [Concomitant]

REACTIONS (2)
  - DRUG INTERACTION POTENTIATION [None]
  - SUICIDAL IDEATION [None]
